FAERS Safety Report 8895335 (Version 2)
Quarter: 2013Q1

REPORT INFORMATION
  Report Type: Spontaneous
  Country: US (occurrence: US)
  Receive Date: 20121108
  Receipt Date: 20130102
  Transmission Date: 20140127
  Serious: No
  Sender: FDA-Public Use
  Company Number: US-ROXANE LABORATORIES, INC.-2012-RO-02352RO

PATIENT
  Sex: Female

DRUGS (2)
  1. IPRATROPIUM BROMIDE [Suspect]
     Indication: RHINORRHOEA
     Route: 045
  2. IPRATROPIUM BROMIDE [Suspect]
     Indication: SNEEZING

REACTIONS (2)
  - Drug ineffective [Unknown]
  - Product quality issue [Unknown]
